FAERS Safety Report 5487341-4 (Version None)
Quarter: 2007Q4

REPORT INFORMATION
  Report Type: 
  Country: None (occurrence: None)
  Receive Date: 20071016
  Receipt Date: 20071004
  Transmission Date: 20080405
  Serious: Yes (Hospitalization, Other)
  Sender: FDA-Public Use
  Company Number: US-PFIZER INC-2006109328

PATIENT
  Sex: Female
  Weight: 59 kg

DRUGS (4)
  1. CELEBREX [Suspect]
     Indication: MUSCLE SPASMS
     Dosage: DAILY DOSE:200MG
  2. BEXTRA [Suspect]
     Indication: MUSCLE SPASMS
     Dates: start: 20041108
  3. VIOXX [Suspect]
     Indication: ARTHRALGIA
     Route: 048
  4. VIOXX [Suspect]
     Indication: MYALGIA

REACTIONS (1)
  - CEREBROVASCULAR ACCIDENT [None]
